FAERS Safety Report 17660486 (Version 1)
Quarter: 2020Q2

REPORT INFORMATION
  Report Type: Spontaneous
  Country: US (occurrence: US)
  Receive Date: 20200413
  Receipt Date: 20200413
  Transmission Date: 20200713
  Serious: No
  Sender: FDA-Public Use
  Company Number: US-PFIZER INC-2020149985

PATIENT
  Age: 64 Year
  Sex: Female

DRUGS (1)
  1. IBRANCE [Suspect]
     Active Substance: PALBOCICLIB
     Dosage: 125 MG (1DF), CYCLIC (DAILY,1-21 OF EVERY 28 DAY CYCLE)
     Route: 048
     Dates: start: 20200226

REACTIONS (1)
  - Weight decreased [Unknown]
